FAERS Safety Report 23182329 (Version 2)
Quarter: 2023Q4

REPORT INFORMATION
  Report Type: Spontaneous
  Country: DE (occurrence: DE)
  Receive Date: 20231114
  Receipt Date: 20231123
  Transmission Date: 20240110
  Serious: Yes (Other)
  Sender: FDA-Public Use
  Company Number: DE-ABBVIE-5490781

PATIENT
  Sex: Male
  Weight: 77 kg

DRUGS (9)
  1. VENETOCLAX [Suspect]
     Active Substance: VENETOCLAX
     Indication: Chronic lymphocytic leukaemia
     Route: 048
     Dates: start: 20231110
  2. VENETOCLAX [Suspect]
     Active Substance: VENETOCLAX
     Indication: Chronic lymphocytic leukaemia
     Route: 048
     Dates: start: 202204
  3. ASPIRIN [Concomitant]
     Active Substance: ASPIRIN
     Indication: Product used for unknown indication
     Route: 048
  4. ATORVASTATIN [Concomitant]
     Active Substance: ATORVASTATIN
     Indication: Product used for unknown indication
  5. CLOPIDOGREL [Concomitant]
     Active Substance: CLOPIDOGREL BISULFATE
     Indication: Product used for unknown indication
  6. TINZAPARIN [Concomitant]
     Active Substance: TINZAPARIN
     Indication: Product used for unknown indication
     Dosage: 4500 UI 0.45 ML
  7. LEVOTHYROXINE SODIUM\POTASSIUM IODIDE [Concomitant]
     Active Substance: LEVOTHYROXINE SODIUM\POTASSIUM IODIDE
     Indication: Product used for unknown indication
     Dosage: 125
  8. BISOPROLOL FUMARATE [Concomitant]
     Active Substance: BISOPROLOL FUMARATE
     Indication: Product used for unknown indication
     Dosage: FREQUENCY TEXT: 1/2
     Route: 048
  9. Jonosteril [Concomitant]
     Indication: Product used for unknown indication

REACTIONS (13)
  - Transient ischaemic attack [Recovered/Resolved]
  - Tongue disorder [Recovered/Resolved]
  - Mitral valve incompetence [Unknown]
  - Transient aphasia [Unknown]
  - Aortic valve incompetence [Unknown]
  - Speech disorder [Unknown]
  - Intracranial meningioma malignant [Unknown]
  - Hypertensive heart disease [Unknown]
  - Diastolic dysfunction [Unknown]
  - Unevaluable event [Unknown]
  - Carotid arteriosclerosis [Unknown]
  - Cerebral atrophy [Unknown]
  - Brain injury [Unknown]

NARRATIVE: CASE EVENT DATE: 20230101
